FAERS Safety Report 9527089 (Version 2)
Quarter: 2013Q3

REPORT INFORMATION
  Report Type: Spontaneous
  Country: US (occurrence: US)
  Receive Date: 20130916
  Receipt Date: 20130916
  Transmission Date: 20140515
  Serious: Yes (Other)
  Sender: FDA-Public Use
  Company Number: US-TEVA-428635USA

PATIENT
  Age: 27 Year
  Sex: Female

DRUGS (2)
  1. MINOCYCLINE [Suspect]
     Indication: ACNE
     Dosage: 150 MILLIGRAM DAILY;
     Route: 048
     Dates: start: 20120730, end: 20120831
  2. DIAMOX [Suspect]
     Dosage: 500 MILLIGRAM DAILY;
     Route: 048

REACTIONS (9)
  - Pneumonia [Recovering/Resolving]
  - Benign intracranial hypertension [Recovering/Resolving]
  - Gallbladder disorder [Unknown]
  - Pulmonary embolism [Unknown]
  - Abdominal distension [Unknown]
  - Vision blurred [Unknown]
  - Hallucination [Unknown]
  - Blood disorder [Unknown]
  - Asthenia [Unknown]
